FAERS Safety Report 4406809-2 (Version None)
Quarter: 2004Q3

REPORT INFORMATION
  Report Type: 
  Country: None (occurrence: None)
  Receive Date: 20040723
  Receipt Date: 20040608
  Transmission Date: 20050211
  Serious: Yes (Congenital Anomaly)
  Sender: FDA-Public Use
  Company Number: DE-MERCK-0406DEU00083B1

PATIENT

DRUGS (2)
  1. FOLIC ACID [Concomitant]
  2. ZOCOR [Suspect]
     Dates: end: 20040601

REACTIONS (3)
  - ABORTION INDUCED [None]
  - DRUG EXPOSURE DURING PREGNANCY [None]
  - TRISOMY 21 [None]
